FAERS Safety Report 9190933 (Version 4)
Quarter: 2013Q2

REPORT INFORMATION
  Report Type: Report from Study
  Country: DE (occurrence: DE)
  Receive Date: 20130326
  Receipt Date: 20130628
  Transmission Date: 20140414
  Serious: Yes (Other)
  Sender: FDA-Public Use
  Company Number: DE-ROCHE-1206165

PATIENT
  Sex: Female

DRUGS (6)
  1. RANIBIZUMAB [Suspect]
     Indication: AGE-RELATED MACULAR DEGENERATION
     Route: 050
     Dates: start: 20120611
  2. RANIBIZUMAB [Suspect]
     Route: 050
     Dates: start: 20120709
  3. RANIBIZUMAB [Suspect]
     Route: 050
     Dates: start: 20120806
  4. RANIBIZUMAB [Suspect]
     Route: 050
     Dates: start: 20120927
  5. RANIBIZUMAB [Suspect]
     Route: 050
     Dates: start: 20121112
  6. RANIBIZUMAB [Suspect]
     Route: 050
     Dates: start: 20121217, end: 20121217

REACTIONS (1)
  - Visual acuity reduced [Unknown]
